FAERS Safety Report 7146370-5 (Version None)
Quarter: 2010Q4

REPORT INFORMATION
  Report Type: 
  Country: None (occurrence: None)
  Receive Date: 20101208
  Receipt Date: 20100107
  Transmission Date: 20110411
  Serious: No
  Sender: FDA-Public Use
  Company Number: US-BRISTOL-MYERS SQUIBB COMPANY-14924708

PATIENT
  Age: 8 Decade
  Sex: Female
  Weight: 63 kg

DRUGS (8)
  1. PRAVASTATIN SODIUM [Suspect]
     Indication: BLOOD TRIGLYCERIDES INCREASED
     Route: 048
     Dates: start: 20091001
  2. TRIAMTERENE AND HYDROCHLOROTHIAZIDE [Concomitant]
  3. LISINOPRIL [Concomitant]
     Dosage: 1 DOSAGE FORM = 20MG A? TABLET
     Route: 048
     Dates: start: 20080501
  4. VITAMIN D [Concomitant]
  5. ASCORBIC ACID [Concomitant]
  6. MULTI-VITAMIN [Concomitant]
  7. ASPIRIN [Concomitant]
     Dosage: 1DF=1/2TABLET
  8. SLOW FE [Concomitant]

REACTIONS (2)
  - SCAR [None]
  - SKIN DISORDER [None]
